FAERS Safety Report 15826258 (Version 1)
Quarter: 2019Q1

REPORT INFORMATION
  Report Type: Report from Study
  Country: US (occurrence: US)
  Receive Date: 20190115
  Receipt Date: 20190115
  Transmission Date: 20190417
  Serious: Yes (Hospitalization, Other)
  Sender: FDA-Public Use
  Company Number: US-BAYER-2019-010217

PATIENT
  Age: 48 Year
  Sex: Female
  Weight: 66.67 kg

DRUGS (3)
  1. ADEMPAS [Suspect]
     Active Substance: RIOCIGUAT
     Indication: PULMONARY ARTERIAL HYPERTENSION
     Dosage: UNK
     Dates: start: 20180928
  2. ADEMPAS [Suspect]
     Active Substance: RIOCIGUAT
     Indication: PULMONARY ARTERIAL HYPERTENSION
     Dosage: 2.0 MG, TID
     Route: 048
  3. ADEMPAS [Suspect]
     Active Substance: RIOCIGUAT
     Indication: PULMONARY ARTERIAL HYPERTENSION
     Dosage: 2.5 MG, TID
     Route: 048

REACTIONS (8)
  - Hospitalisation [None]
  - Cerebrovascular accident [None]
  - Speech disorder [Not Recovered/Not Resolved]
  - Decreased appetite [Unknown]
  - Swelling face [Unknown]
  - Pain in jaw [Unknown]
  - Hemianaesthesia [Recovered/Resolved]
  - Rehabilitation therapy [None]

NARRATIVE: CASE EVENT DATE: 2018
